FAERS Safety Report 4425136-0 (Version None)
Quarter: 2004Q3

REPORT INFORMATION
  Report Type: 
  Country: None (occurrence: None)
  Receive Date: 20040813
  Receipt Date: 20040805
  Transmission Date: 20050211
  Serious: Yes (Death, Life-Threatening, Hospitalization)
  Sender: FDA-Public Use
  Company Number: US-AMGEN-US086368

PATIENT
  Sex: Female

DRUGS (9)
  1. DARBEPOETIN ALFA [Suspect]
     Indication: ANAEMIA OF MALIGNANT DISEASE
     Dates: start: 20040401, end: 20040719
  2. RITUXIMAB [Concomitant]
  3. CYCLOPHOSPHAMIDE [Concomitant]
     Dates: start: 20040405, end: 20040719
  4. DOXORUBICIN HCL [Concomitant]
     Dates: start: 20040405, end: 20040719
  5. VINCRISTINE [Concomitant]
     Dates: start: 20040405, end: 20040719
  6. PREDNISONE [Concomitant]
     Dates: start: 20040405, end: 20040719
  7. NEULASTA [Concomitant]
     Dates: start: 20040720
  8. DILTIAZEM [Concomitant]
  9. DIGOXIN [Concomitant]

REACTIONS (10)
  - ATRIAL FIBRILLATION [None]
  - BLOOD POTASSIUM DECREASED [None]
  - CARDIAC ARREST [None]
  - CARDIAC FAILURE CONGESTIVE [None]
  - FEBRILE NEUTROPENIA [None]
  - HAEMOGLOBIN DECREASED [None]
  - INFECTION [None]
  - MITRAL VALVE INCOMPETENCE [None]
  - VENTRICULAR FIBRILLATION [None]
  - WHITE BLOOD CELL COUNT DECREASED [None]
